FAERS Safety Report 6855919-9 (Version None)
Quarter: 2010Q3

REPORT INFORMATION
  Report Type: 
  Country: None (occurrence: None)
  Receive Date: 20100716
  Receipt Date: 20100716
  Transmission Date: 20110219
  Serious: Yes (Hospitalization)
  Sender: FDA-Public Use
  Company Number: None

PATIENT
  Sex: Male
  Weight: 74.3899 kg

DRUGS (1)
  1. NITROFURANTOIN [Suspect]
     Indication: INFECTION PROPHYLAXIS
     Dosage: 100 MG CAP. ONCE DAILY ORALLY
     Route: 048
     Dates: start: 20100519

REACTIONS (5)
  - COUGH [None]
  - DYSPNOEA [None]
  - HYPERHIDROSIS [None]
  - PYREXIA [None]
  - RED BLOOD CELL COUNT DECREASED [None]
